FAERS Safety Report 15957948 (Version 4)
Quarter: 2019Q2

REPORT INFORMATION
  Report Type: Report from Study
  Country: US (occurrence: US)
  Receive Date: 20190213
  Receipt Date: 20190618
  Transmission Date: 20190711
  Serious: Yes (Hospitalization, Other)
  Sender: FDA-Public Use
  Company Number: US-ACTELION-A-NJ2018-177289

PATIENT
  Age: 65 Year
  Sex: Male

DRUGS (45)
  1. EPINEPHRINE. [Concomitant]
     Active Substance: EPINEPHRINE
  2. DOXYCYCLA [Concomitant]
  3. TENOFOVIR ALAFENAMIDE [Concomitant]
     Active Substance: TENOFOVIR ALAFENAMIDE
  4. IBUPROFEN. [Concomitant]
     Active Substance: IBUPROFEN
     Dosage: UNK
     Dates: start: 20190316
  5. LEVAQUIN [Concomitant]
     Active Substance: LEVOFLOXACIN
     Dosage: UNK
     Dates: start: 20190316
  6. PEPCID [Concomitant]
     Active Substance: FAMOTIDINE
     Dosage: UNK
     Dates: start: 20190316
  7. VALGANCICLOVIR. [Concomitant]
     Active Substance: VALGANCICLOVIR
  8. ONDANSETRON [Concomitant]
     Active Substance: ONDANSETRON
  9. AZITHROMYCIN ANHYDROUS. [Concomitant]
     Active Substance: AZITHROMYCIN ANHYDROUS
  10. HYLATOPICPLUS [Concomitant]
     Active Substance: EMOLLIENTS
  11. EMTRICITABINE [Concomitant]
     Active Substance: EMTRICITABINE
  12. OPSUMIT [Suspect]
     Active Substance: MACITENTAN
     Indication: PULMONARY ARTERIAL HYPERTENSION
     Dosage: UNK UNK, QD
     Route: 048
     Dates: start: 20180721
  13. OPSUMIT [Suspect]
     Active Substance: MACITENTAN
     Dosage: 10 MG, QD
     Route: 048
  14. FUROSEMIDE. [Concomitant]
     Active Substance: FUROSEMIDE
  15. RANITIDINE. [Concomitant]
     Active Substance: RANITIDINE
  16. BENZONATATE. [Concomitant]
     Active Substance: BENZONATATE
  17. METHYLPRED [Concomitant]
     Active Substance: METHYLPREDNISOLONE
  18. FLUTICASONE. [Concomitant]
     Active Substance: FLUTICASONE
  19. LISINOPRIL. [Concomitant]
     Active Substance: LISINOPRIL
  20. FOLIC ACID. [Concomitant]
     Active Substance: FOLIC ACID
  21. COLCHICINE. [Concomitant]
     Active Substance: COLCHICINE
     Dosage: 0.6 MG
  22. FLUOXETINE [Concomitant]
     Active Substance: FLUOXETINE HYDROCHLORIDE
  23. BUPROBAN [Concomitant]
     Active Substance: BUPROPION HYDROCHLORIDE
  24. DIPHEN [Concomitant]
  25. CYANOCOBALAMINE [Concomitant]
     Active Substance: CYANOCOBALAMIN
  26. LORATADINE. [Concomitant]
     Active Substance: LORATADINE
     Dosage: UNK
     Dates: start: 20190316
  27. PROTONIX [Concomitant]
     Active Substance: PANTOPRAZOLE SODIUM
     Dosage: UNK
     Dates: start: 20190316
  28. CLOBETASOL [Concomitant]
     Active Substance: CLOBETASOL
  29. LEVOFLOXACIN. [Concomitant]
     Active Substance: LEVOFLOXACIN
  30. ZOFRAN [Concomitant]
     Active Substance: ONDANSETRON HYDROCHLORIDE
     Dosage: UNK
     Dates: start: 20190316
  31. FAMOTIDINE. [Concomitant]
     Active Substance: FAMOTIDINE
  32. SULFAMETHOXAZOLE AND TRIMETHOPRIM [Concomitant]
     Active Substance: SULFAMETHOXAZOLE\TRIMETHOPRIM
  33. KETOCONAZOLE. [Concomitant]
     Active Substance: KETOCONAZOLE
  34. BUSPIRONE [Concomitant]
     Active Substance: BUSPIRONE HYDROCHLORIDE
  35. METHOTREXATE. [Concomitant]
     Active Substance: METHOTREXATE
  36. DUONEB [Concomitant]
     Active Substance: ALBUTEROL SULFATE\IPRATROPIUM BROMIDE
     Dosage: UNK
     Dates: start: 20190316
  37. TRIAMCINOLONE [Concomitant]
     Active Substance: TRIAMCINOLONE
  38. NYSTATIN. [Concomitant]
     Active Substance: NYSTATIN
  39. ADEMPAS [Concomitant]
     Active Substance: RIOCIGUAT
     Dosage: 2.5 MG
     Dates: start: 20181101
  40. SYMBICORT [Concomitant]
     Active Substance: BUDESONIDE\FORMOTEROL FUMARATE DIHYDRATE
  41. PANTOPRAZOLE [Concomitant]
     Active Substance: PANTOPRAZOLE
  42. ALFUZOSIN [Concomitant]
     Active Substance: ALFUZOSIN
  43. ALCLOMETASONE [Concomitant]
     Active Substance: ALCLOMETASONE
  44. BICTEGRAVIR [Concomitant]
     Active Substance: BICTEGRAVIR
     Dosage: UNK
     Dates: start: 20190316
  45. FORMOTEROL FUMARATE W/MOMETASONE FUROATE [Concomitant]
     Dosage: UNK
     Dates: start: 20190316

REACTIONS (11)
  - Pulmonary mass [Unknown]
  - Joint swelling [Unknown]
  - Hospitalisation [Unknown]
  - Pyrexia [Recovered/Resolved]
  - Bronchoscopy [Unknown]
  - Syncope [Unknown]
  - Chills [Not Recovered/Not Resolved]
  - Rib fracture [Unknown]
  - Pneumocystis jirovecii pneumonia [Recovered/Resolved]
  - Peripheral swelling [Unknown]
  - Lung consolidation [Unknown]

NARRATIVE: CASE EVENT DATE: 201807
